FAERS Safety Report 6951004-6 (Version None)
Quarter: 2010Q3

REPORT INFORMATION
  Report Type: 
  Country: None (occurrence: None)
  Receive Date: 20100824
  Receipt Date: 20100811
  Transmission Date: 20110219
  Serious: Yes (Other)
  Sender: FDA-Public Use
  Company Number: CA-1183070

PATIENT
  Age: 63 Year
  Sex: Female

DRUGS (2)
  1. FLUORESCITE [Suspect]
     Dosage: INTRAVENOUS BOLUS
     Route: 040
     Dates: start: 20091201, end: 20091201
  2. ATROPINE SULFATE (ATROPINE SULFATE) - OPHTHALMIC [Concomitant]

REACTIONS (2)
  - SWOLLEN TONGUE [None]
  - URTICARIA [None]
